FAERS Safety Report 6779674-6 (Version None)
Quarter: 2010Q2

REPORT INFORMATION
  Report Type: 
  Country: None (occurrence: None)
  Receive Date: 20100618
  Receipt Date: 20100609
  Transmission Date: 20101027
  Serious: Yes (Other)
  Sender: FDA-Public Use
  Company Number: US-ASTRAZENECA-2010SE24215

PATIENT
  Age: 70 Year
  Sex: Female
  Weight: 72.6 kg

DRUGS (13)
  1. PRILOSEC OTC [Suspect]
     Indication: GASTROOESOPHAGEAL REFLUX DISEASE
     Route: 048
     Dates: start: 20050401, end: 20100527
  2. PRILOSEC OTC [Suspect]
     Indication: DYSPEPSIA
     Route: 048
     Dates: start: 20050401, end: 20100527
  3. PRILOSEC OTC [Suspect]
     Route: 048
     Dates: start: 20100601
  4. PRILOSEC OTC [Suspect]
     Route: 048
     Dates: start: 20100601
  5. MICARDIS [Concomitant]
  6. NASONEX [Concomitant]
  7. ALDACTONE [Concomitant]
  8. SINGULAIR [Concomitant]
  9. METAGLIP [Concomitant]
  10. LOPRESSOR [Concomitant]
  11. MULTIVITAMINS AND MINERALS [Concomitant]
  12. FISH OIL [Concomitant]
  13. OSTEO-BI-FLEX [Concomitant]

REACTIONS (6)
  - ANAEMIA [None]
  - ARTHROPATHY [None]
  - BONE PAIN [None]
  - FRACTURE [None]
  - GASTRIC ANTRAL VASCULAR ECTASIA [None]
  - GASTRIC HAEMORRHAGE [None]
